FAERS Safety Report 24671525 (Version 1)
Quarter: 2024Q4

REPORT INFORMATION
  Report Type: Report from Study
  Country: US (occurrence: US)
  Receive Date: 20241127
  Receipt Date: 20241127
  Transmission Date: 20250115
  Serious: Yes (Other)
  Sender: PFIZER
  Company Number: US-PFIZER INC-PV202400152461

PATIENT
  Age: 28 Year
  Sex: Female

DRUGS (1)
  1. DOXORUBICIN HYDROCHLORIDE [Suspect]
     Active Substance: DOXORUBICIN HYDROCHLORIDE
     Indication: Desmoid tumour
     Dosage: UNK, CYCLIC (2 CYCLES)

REACTIONS (3)
  - Rash maculo-papular [Unknown]
  - Nausea [Unknown]
  - Headache [Unknown]
